FAERS Safety Report 6267256-4 (Version None)
Quarter: 2009Q3

REPORT INFORMATION
  Report Type: 
  Country: None (occurrence: None)
  Receive Date: 20090714
  Receipt Date: 20090702
  Transmission Date: 20100115
  Serious: Yes (Other)
  Sender: FDA-Public Use
  Company Number: US-PFIZER INC-2009236692

PATIENT

DRUGS (1)
  1. DEPO-SUBQ PROVERA 104 [Suspect]
     Route: 058

REACTIONS (2)
  - BONE PAIN [None]
  - HYPOAESTHESIA [None]
